FAERS Safety Report 10392365 (Version 2)
Quarter: 2014Q1

REPORT INFORMATION
  Report Type: Spontaneous
  Country: US (occurrence: None)
  Receive Date: 20120817
  Receipt Date: 20130815
  Transmission Date: 20141002
  Serious: Yes (Other)
  Sender: FDA-Public Use
  Company Number: ADR-2012-01004

PATIENT
  Sex: Male

DRUGS (3)
  1. LIORESAL INTRATHECAL (BACLOFEN INJECTION) [Suspect]
     Indication: PAIN
  2. LIORESAL INTRATHECAL (BACLOFEN INJECTION) [Suspect]
     Indication: POST LAMINECTOMY SYNDROME
  3. DILAUDID (HYDROMORPHONE) [Concomitant]

REACTIONS (10)
  - Headache [None]
  - Nausea [None]
  - Abdominal pain upper [None]
  - Loss of consciousness [None]
  - Drug withdrawal syndrome [None]
  - Asthenia [None]
  - Diarrhoea [None]
  - Hot flush [None]
  - Pain [None]
  - Gastrointestinal pain [None]
